FAERS Safety Report 17284054 (Version 2)
Quarter: 2020Q1

REPORT INFORMATION
  Report Type: Spontaneous
  Country: IN (occurrence: IN)
  Receive Date: 20200117
  Receipt Date: 20200306
  Transmission Date: 20200409
  Serious: Yes (Hospitalization, Other)
  Sender: FDA-Public Use
  Company Number: IN-VISTAPHARM, INC.-VER202001-000085

PATIENT
  Age: 51 Year
  Sex: Female
  Weight: 72 kg

DRUGS (15)
  1. DIAZEPAM. [Concomitant]
     Active Substance: DIAZEPAM
     Dosage: 5 MG
     Route: 048
  2. SODIUM VALPROATE [Concomitant]
     Active Substance: VALPROATE SODIUM
     Indication: GENERALISED TONIC-CLONIC SEIZURE
     Dosage: 200 MG TWICE DAILY
     Route: 048
  3. PHENYTOIN. [Suspect]
     Active Substance: PHENYTOIN
     Dosage: 100 MG THRICE DAILY
     Route: 042
  4. GENTAMICIN. [Concomitant]
     Active Substance: GENTAMICIN
     Indication: INFECTION
     Dosage: 80 MG TWICE DAILY
  5. RANITIDINE. [Concomitant]
     Active Substance: RANITIDINE
     Indication: PRODUCT USED FOR UNKNOWN INDICATION
     Dosage: 50 MG TWICE DAILY
  6. SODIUM VALPROATE [Concomitant]
     Active Substance: VALPROATE SODIUM
     Indication: GENERALISED TONIC-CLONIC SEIZURE
  7. PHENYTOIN. [Suspect]
     Active Substance: PHENYTOIN
     Dosage: 100 MG THRICE DAILY
     Route: 048
  8. DEXTROSE. [Concomitant]
     Active Substance: DEXTROSE
     Indication: PRODUCT USED FOR UNKNOWN INDICATION
     Dosage: 500 ML (NORMAL SALINE) AT 100 ML/H
  9. PHENYTOIN. [Suspect]
     Active Substance: PHENYTOIN
     Indication: GENERALISED TONIC-CLONIC SEIZURE
     Dosage: 100 MG TWICE DAILY
     Route: 048
  10. PHENYTOIN. [Suspect]
     Active Substance: PHENYTOIN
     Dosage: LOADING DOSE OF 700 MG PHENYTOIN AT A RATE OF 46.6 MG/MIN OVER 15 MINUTES
  11. DIAZEPAM. [Concomitant]
     Active Substance: DIAZEPAM
     Indication: SEIZURE
     Dosage: 10 MG AS NEEDED
  12. VITAMIN B12 [Concomitant]
     Active Substance: CYANOCOBALAMIN
     Indication: PRODUCT USED FOR UNKNOWN INDICATION
     Dosage: 200 MG TWICE DAILY
     Route: 030
  13. PHENYTOIN. [Suspect]
     Active Substance: PHENYTOIN
     Indication: GENERALISED TONIC-CLONIC SEIZURE
     Dosage: 6 AMPOULES (100 MG/VIAL) WERE DILUTED IN 100 ML NORMAL SALINE INFUSED OVER 15 MINUTES
     Route: 042
  14. PHENYTOIN. [Suspect]
     Active Substance: PHENYTOIN
     Dosage: BOLUS 100 MG THRICE DAILY
     Route: 042
  15. CEFTRIAXONE. [Concomitant]
     Active Substance: CEFTRIAXONE
     Indication: INFECTION
     Dosage: 1 GM TWICE DAILY

REACTIONS (8)
  - Blood disorder [Recovered/Resolved]
  - Dizziness [Recovered/Resolved]
  - Partial seizures [Recovered/Resolved]
  - Paradoxical drug reaction [Recovered/Resolved]
  - Treatment noncompliance [Unknown]
  - Seizure [Recovered/Resolved]
  - Overdose [Recovered/Resolved]
  - Hypotension [Recovered/Resolved]
